FAERS Safety Report 7503305-0 (Version None)
Quarter: 2011Q2

REPORT INFORMATION
  Report Type: 
  Country: None (occurrence: None)
  Receive Date: 20110518
  Receipt Date: 20110114
  Transmission Date: 20111010
  Serious: No
  Sender: FDA-Public Use
  Company Number: NXG-11-001

PATIENT
  Sex: Male
  Weight: 92.5338 kg

DRUGS (10)
  1. HUMAN INSULIN [Concomitant]
  2. ATENOLOL [Concomitant]
  3. METFORMIN HCL [Concomitant]
  4. LISINOPRIL [Concomitant]
  5. MAGNESIUM SULFATE [Concomitant]
  6. POLYETHYLENE GLYCOL 3350 [Suspect]
     Indication: CONSTIPATION
     Dosage: 17 GM IN 8OZ WATER/DAY
  7. ALPRAZOLAM [Concomitant]
  8. LOVAZA [Concomitant]
  9. LOVASTATIN [Concomitant]
  10. KLOR-CON [Concomitant]

REACTIONS (4)
  - ERYTHEMA [None]
  - DYSPNOEA [None]
  - SWOLLEN TONGUE [None]
  - DRUG INTERACTION [None]
